FAERS Safety Report 4296102-3 (Version None)
Quarter: 2004Q1

REPORT INFORMATION
  Report Type: 
  Country: None (occurrence: None)
  Receive Date: 20040213
  Receipt Date: 20040213
  Transmission Date: 20041129
  Serious: Yes (Life-Threatening, Hospitalization)
  Sender: FDA-Public Use
  Company Number: None

PATIENT
  Age: 47 Year
  Sex: Female

DRUGS (1)
  1. ESTRADIOL [Suspect]
     Indication: HYSTERECTOMY
     Dosage: 1 MG PO DAILY
     Route: 048
     Dates: start: 20030301, end: 20030901

REACTIONS (1)
  - PULMONARY EMBOLISM [None]
